FAERS Safety Report 16811753 (Version 2)
Quarter: 2019Q3

REPORT INFORMATION
  Report Type: Spontaneous
  Country: HU (occurrence: HU)
  Receive Date: 20190916
  Receipt Date: 20190930
  Transmission Date: 20191005
  Serious: Yes (Hospitalization)
  Sender: FDA-Public Use
  Company Number: HU-MYLANLABS-2019M1085958

PATIENT
  Age: 40 Year
  Sex: Female

DRUGS (7)
  1. VENTER [SUCRALFATE] [Suspect]
     Active Substance: SUCRALFATE
     Indication: PRODUCT USED FOR UNKNOWN INDICATION
     Dosage: UNK
     Dates: start: 20190907
  2. PRADAXA [Concomitant]
     Active Substance: DABIGATRAN ETEXILATE MESYLATE
     Indication: THROMBOSIS
     Dosage: 150 MILLIGRAM, BID
     Route: 048
     Dates: start: 20190905
  3. LEPONEX [Suspect]
     Active Substance: CLOZAPINE
     Indication: PRODUCT USED FOR UNKNOWN INDICATION
     Dosage: 75 MILLIGRAM, QD
     Route: 048
     Dates: start: 20190905, end: 20190905
  4. CLEXANE [Concomitant]
     Active Substance: ENOXAPARIN SODIUM
     Dosage: UNK
     Dates: start: 20190903, end: 20190905
  5. LETROX [Suspect]
     Active Substance: LEVOTHYROXINE SODIUM
     Indication: HYPOTHYROIDISM
     Dosage: 75 MICROGRAM, QD
  6. APRANAX                            /00256201/ [Suspect]
     Active Substance: NAPROXEN
     Indication: HEADACHE
     Dosage: UNK
     Dates: start: 20190907
  7. CLEXANE [Concomitant]
     Active Substance: ENOXAPARIN SODIUM
     Indication: THROMBOSIS
     Dosage: UNK
     Dates: start: 20190902

REACTIONS (14)
  - Loss of consciousness [Recovered/Resolved]
  - Headache [Recovered/Resolved]
  - Peripheral coldness [Recovered/Resolved]
  - Blood pressure fluctuation [Recovered/Resolved]
  - Wrong product administered [Unknown]
  - Hypotension [Recovered/Resolved]
  - Disorientation [Recovered/Resolved]
  - Burning sensation [Recovered/Resolved]
  - Swelling face [Recovering/Resolving]
  - Mouth swelling [Recovering/Resolving]
  - Eye swelling [Recovering/Resolving]
  - Chromaturia [Recovered/Resolved]
  - Cold sweat [Recovered/Resolved]
  - Tremor [Recovered/Resolved]

NARRATIVE: CASE EVENT DATE: 20190905
